FAERS Safety Report 6370965-X (Version None)
Quarter: 2009Q3

REPORT INFORMATION
  Report Type: 
  Country: None (occurrence: None)
  Receive Date: 20090923
  Receipt Date: 20080508
  Transmission Date: 20100115
  Serious: Yes (Other)
  Sender: FDA-Public Use
  Company Number: US-ASTRAZENECA-2006UW22710

PATIENT
  Age: 12471 Day
  Sex: Female
  Weight: 81.6 kg

DRUGS (23)
  1. SEROQUEL [Suspect]
     Indication: BIPOLAR DISORDER
     Dosage: 25 MG DAILY THEN WENT UP
     Route: 048
     Dates: start: 20020627, end: 20041117
  2. SEROQUEL [Suspect]
     Indication: DEPRESSION
     Dosage: 25 MG DAILY THEN WENT UP
     Route: 048
     Dates: start: 20020627, end: 20041117
  3. SEROQUEL [Suspect]
     Indication: POST-TRAUMATIC STRESS DISORDER
     Dosage: 25 MG DAILY THEN WENT UP
     Route: 048
     Dates: start: 20020627, end: 20041117
  4. SEROQUEL [Suspect]
     Dosage: 25-100 MG
     Route: 048
     Dates: start: 20020627
  5. SEROQUEL [Suspect]
     Dosage: 25-100 MG
     Route: 048
     Dates: start: 20020627
  6. SEROQUEL [Suspect]
     Dosage: 25-100 MG
     Route: 048
     Dates: start: 20020627
  7. ZYPREXA [Concomitant]
  8. CELEXA [Concomitant]
     Dates: start: 20060101
  9. KLONOPIN [Concomitant]
  10. TRILEPTOL [Concomitant]
     Dates: start: 20060101
  11. EFFEXOR XR [Concomitant]
  12. CYCLOBENZAPRINE HCL [Concomitant]
  13. DEPAKOTE [Concomitant]
  14. ALPRAZOLAM [Concomitant]
  15. HYDROCHLOROTHIAZIDE [Concomitant]
  16. LISINOPRIL [Concomitant]
  17. OXYBUTYNIN CL [Concomitant]
  18. AVANDIA [Concomitant]
  19. LOVASTATIN [Concomitant]
  20. INDERAL LA [Concomitant]
  21. CLONAZEPAM [Concomitant]
  22. METFORMIN HCL [Concomitant]
  23. COMBIVENT [Concomitant]
     Route: 055

REACTIONS (2)
  - DIABETES MELLITUS [None]
  - PANCREATITIS [None]
